FAERS Safety Report 20226018 (Version 1)
Quarter: 2021Q4

REPORT INFORMATION
  Report Type: Spontaneous
  Country: DE (occurrence: DE)
  Receive Date: 20211224
  Receipt Date: 20211224
  Transmission Date: 20220304
  Serious: Yes (Hospitalization)
  Sender: FDA-Public Use
  Company Number: DE-ADRED-07106-01

PATIENT
  Age: 69 Year
  Sex: Female

DRUGS (14)
  1. SIMVASTATIN [Suspect]
     Active Substance: SIMVASTATIN
     Dosage: 20 MG, 0-0-1-0, TABLETS
     Route: 048
  2. METOPROLOL [Concomitant]
     Active Substance: METOPROLOL
     Dosage: 47.5 MG, 1-0-1-0, PROLONGED-RELEASE TABLET
     Route: 048
  3. PANTOPRAZOLE [Suspect]
     Active Substance: PANTOPRAZOLE
     Dosage: 40 MG, 1-0-1-0, PROLONGED-RELEASE TABLET
     Route: 048
  4. ISOPHANE INSULIN [Concomitant]
     Active Substance: INSULIN NOS
     Dosage: 1 IE, 0-0-0-12, FERTIGSPRITZEN
     Route: 058
  5. ALLOPURINOL [Suspect]
     Active Substance: ALLOPURINOL
     Dosage: 300 MG, 0-0-1-0, TABLETS
     Route: 048
  6. INSULIN HUMAN [Concomitant]
     Active Substance: INSULIN HUMAN
     Dosage: 1 IE, 8-6-8-0, ZYLINDERAMPULLEN
     Route: 058
  7. ESCITALOPRAM [Concomitant]
     Active Substance: ESCITALOPRAM OXALATE
     Dosage: 10 MG, 1-0-0-0, TABLETS
     Route: 048
  8. CYANOCOBALAMIN [Concomitant]
     Active Substance: CYANOCOBALAMIN
     Dosage: 1 MILLIGRAM, ACCORDING TO THE SCHEME,AMPOULES
     Route: 030
  9. CARBAMAZEPINE [Suspect]
     Active Substance: CARBAMAZEPINE
     Dosage: 200 MG, 2-0-2-0, TABLETS
     Route: 048
  10. TRAMADOL [Concomitant]
     Active Substance: TRAMADOL
     Dosage: 100 MG, NEEDED, TROPFEN
     Route: 048
  11. ASPIRIN [Concomitant]
     Active Substance: ASPIRIN
     Dosage: 100 MG, 1-0-0-0, TABLETS
     Route: 048
  12. FLUTICASONE PROPIONATE\SALMETEROL XINAFOATE [Concomitant]
     Active Substance: FLUTICASONE PROPIONATE\SALMETEROL XINAFOATE
     Dosage: 250|25 ?G, 1-0-1-0, DOSIERAEROSOL
     Route: 055
  13. HYDROCHLOROTHIAZIDE\RAMIPRIL [Suspect]
     Active Substance: HYDROCHLOROTHIAZIDE\RAMIPRIL
     Dosage: 12.5|2.5 MG, 2-0-0-0, TABLETS
     Route: 048
  14. APIXABAN [Concomitant]
     Active Substance: APIXABAN
     Dosage: 5 MG, 1-0-1-0, TABLETS
     Route: 048

REACTIONS (7)
  - Abdominal pain upper [Unknown]
  - Diarrhoea [Unknown]
  - Abdominal pain [Unknown]
  - Lipase increased [Unknown]
  - Diarrhoea [Unknown]
  - Vomiting [Unknown]
  - Vomiting [Unknown]
